FAERS Safety Report 10501712 (Version 2)
Quarter: 2014Q4

REPORT INFORMATION
  Report Type: Report from Study
  Country: KR (occurrence: KR)
  Receive Date: 20141007
  Receipt Date: 20141017
  Transmission Date: 20150528
  Serious: Yes (Hospitalization)
  Sender: FDA-Public Use
  Company Number: KR-GLAXOSMITHKLINE-B1020449B

PATIENT
  Age: 71 Year
  Sex: Female
  Weight: 53 kg

DRUGS (15)
  1. TRIDOL [Concomitant]
     Indication: BACK PAIN
     Route: 042
     Dates: start: 20140730, end: 20140731
  2. TRIDOL [Concomitant]
     Dosage: 50 MG, SINGLE
     Route: 042
     Dates: start: 20140928, end: 20140928
  3. SMECTA [Concomitant]
     Active Substance: MONTMORILLONITE
     Indication: DIARRHOEA
     Dosage: 20 ML, SINGLE
     Route: 048
     Dates: start: 20140926, end: 20140926
  4. VINORELBINE TARTRATE. [Suspect]
     Active Substance: VINORELBINE TARTRATE
     Dosage: 16 MG/M2, CYC
     Route: 065
     Dates: start: 20140917
  5. TRIAXONE [Concomitant]
     Indication: INFECTION
     Dosage: 2000 MG, QID
     Route: 042
     Dates: start: 20140929, end: 20140930
  6. VINORELBINE TARTRATE. [Suspect]
     Active Substance: VINORELBINE TARTRATE
     Indication: BREAST NEOPLASM
     Dosage: 16 MG/M2, CYC
     Route: 065
     Dates: start: 20140911
  7. TYKERB [Suspect]
     Active Substance: LAPATINIB DITOSYLATE
     Dosage: 750 MG, QD
     Dates: start: 20140804, end: 20140813
  8. DUPHALAC [Concomitant]
     Active Substance: LACTULOSE
     Indication: CONSTIPATION
     Dosage: 15 ML, QD
     Route: 048
     Dates: start: 20140929
  9. MEGACE [Concomitant]
     Active Substance: MEGESTROL ACETATE
     Indication: DYSGEUSIA
     Dosage: 10 ML, QD
     Dates: start: 20140920
  10. TYKERB [Suspect]
     Active Substance: LAPATINIB DITOSYLATE
     Indication: BREAST NEOPLASM
     Dosage: 1000 MG, QD
     Route: 048
     Dates: start: 20140717, end: 20140729
  11. POTASSIUM CHLORIDE. [Concomitant]
     Active Substance: POTASSIUM CHLORIDE
     Dosage: 1200 MG, TID
     Route: 048
     Dates: start: 20140730, end: 20140730
  12. TYKERB [Suspect]
     Active Substance: LAPATINIB DITOSYLATE
     Dosage: 750 MG, QD
     Dates: start: 20140826, end: 20140924
  13. MACPERAN [Concomitant]
     Indication: VOMITING
     Dosage: 10 MG, SINGLE
     Route: 042
     Dates: start: 20140925, end: 20140925
  14. LEVOPHED [Concomitant]
     Active Substance: NOREPINEPHRINE BITARTRATE
     Indication: HYPOTENSION
     Dosage: 0.04 MG/KG/MIN SINGLE
     Route: 042
     Dates: start: 20140925, end: 20140925
  15. LEVAN H [Concomitant]
     Indication: PROPHYLAXIS
     Dosage: 2 G, PRN
     Route: 061
     Dates: start: 20140920

REACTIONS (1)
  - Febrile neutropenia [Recovered/Resolved]

NARRATIVE: CASE EVENT DATE: 20140925
